FAERS Safety Report 8248418-3 (Version None)
Quarter: 2012Q1

REPORT INFORMATION
  Report Type: 
  Country: None (occurrence: None)
  Receive Date: 20120330
  Receipt Date: 20120326
  Transmission Date: 20120608
  Serious: Yes (Hospitalization)
  Sender: FDA-Public Use
  Company Number: US-GILEAD-2012-0052786

PATIENT
  Age: 34 Year
  Sex: Female

DRUGS (2)
  1. FLOLAN [Concomitant]
  2. LETAIRIS [Suspect]
     Indication: PULMONARY HYPERTENSION
     Dosage: 5 MG, UNK
     Route: 048
     Dates: start: 20080821

REACTIONS (1)
  - PULMONARY ARTERIAL HYPERTENSION [None]
